FAERS Safety Report 7923921-1 (Version None)
Quarter: 2011Q4

REPORT INFORMATION
  Report Type: 
  Country: None (occurrence: None)
  Receive Date: 20111117
  Receipt Date: 20110210
  Transmission Date: 20120403
  Serious: No
  Sender: FDA-Public Use
  Company Number: US-AMGEN-USASP2011007946

PATIENT
  Age: 53 Year
  Sex: Female

DRUGS (1)
  1. ENBREL [Suspect]
     Indication: RHEUMATOID ARTHRITIS
     Dosage: 50 MG, QWK
     Dates: start: 20110125

REACTIONS (10)
  - NERVOUS SYSTEM DISORDER [None]
  - INJECTION SITE ERYTHEMA [None]
  - JOINT CONTRACTURE [None]
  - VISUAL ACUITY REDUCED [None]
  - NASOPHARYNGITIS [None]
  - INJECTION SITE PRURITUS [None]
  - SWELLING FACE [None]
  - NERVOUSNESS [None]
  - BLOOD PRESSURE INCREASED [None]
  - INJECTION SITE SWELLING [None]
